FAERS Safety Report 25920609 (Version 3)
Quarter: 2025Q4

REPORT INFORMATION
  Report Type: Spontaneous
  Country: US (occurrence: US)
  Receive Date: 20251014
  Receipt Date: 20251201
  Transmission Date: 20260118
  Serious: No
  Sender: MYLAN
  Company Number: US-MYLANLABS-2025M1085335

PATIENT
  Age: 24 Year
  Sex: Male

DRUGS (2)
  1. EPINEPHRINE [Suspect]
     Active Substance: EPINEPHRINE
     Indication: Hypersensitivity
     Dosage: 0.3 MILLIGRAM, PRN (INJECT INTO THE MIDDLE OF THE OUTER THIGH AND HOLD FOR 3 SECONDS AS NEEDED)
  2. EPINEPHRINE [Suspect]
     Active Substance: EPINEPHRINE
     Dosage: 0.3 MILLIGRAM, PRN (INJECT INTO THE MIDDLE OF THE OUTER THIGH AND HOLD FOR 3 SECONDS AS NEEDED)

REACTIONS (2)
  - Circumstance or information capable of leading to medication error [Unknown]
  - Liquid product physical issue [Unknown]

NARRATIVE: CASE EVENT DATE: 20251001
